FAERS Safety Report 26143814 (Version 2)
Quarter: 2025Q4

REPORT INFORMATION
  Report Type: Spontaneous
  Country: EU (occurrence: EU)
  Receive Date: 20251211
  Receipt Date: 20251224
  Transmission Date: 20260117
  Serious: Yes (Other)
  Sender: NOVARTIS
  Company Number: EU-002147023-NVSC2025BE189503

PATIENT
  Sex: Female
  Weight: 61 kg

DRUGS (3)
  1. GILENYA [Suspect]
     Active Substance: FINGOLIMOD HYDROCHLORIDE
     Indication: Relapsing-remitting multiple sclerosis
     Dosage: 0.5 MG, QD
     Route: 048
  2. Daflon [Concomitant]
     Indication: Product used for unknown indication
     Dosage: 500 MG, QD
     Route: 048
  3. LEVOTHYROXINE [Concomitant]
     Active Substance: LEVOTHYROXINE
     Indication: Product used for unknown indication
     Dosage: 0.075 MG, QD
     Route: 048

REACTIONS (4)
  - Breast cancer [Unknown]
  - Hydronephrosis [Unknown]
  - Lymphopenia [Unknown]
  - Ureterolithiasis [Unknown]
